FAERS Safety Report 12116074 (Version 1)
Quarter: 2016Q1

REPORT INFORMATION
  Report Type: Spontaneous
  Country: US (occurrence: US)
  Receive Date: 20160225
  Receipt Date: 20160225
  Transmission Date: 20160526
  Serious: No
  Sender: FDA-Public Use
  Company Number: US-BIOGEN-2016BI00192275

PATIENT
  Sex: Female

DRUGS (1)
  1. PLEGRIDY [Suspect]
     Active Substance: PEGINTERFERON BETA-1A
     Indication: MULTIPLE SCLEROSIS
     Route: 065
     Dates: start: 20150320

REACTIONS (6)
  - Influenza like illness [Unknown]
  - Fatigue [Unknown]
  - Contusion [Unknown]
  - Myalgia [Unknown]
  - Chills [Unknown]
  - Drug administered to patient of inappropriate age [Unknown]
